FAERS Safety Report 6386874-6 (Version None)
Quarter: 2009Q4

REPORT INFORMATION
  Report Type: 
  Country: None (occurrence: None)
  Receive Date: 20091002
  Receipt Date: 20090923
  Transmission Date: 20100525
  Serious: Yes (Other)
  Sender: FDA-Public Use
  Company Number: US-ASTRAZENECA-2009SE10355

PATIENT
  Age: 55 Year
  Sex: Female

DRUGS (7)
  1. FASLODEX [Suspect]
     Indication: BREAST CANCER METASTATIC
     Dosage: ONCE A MONTH
     Route: 030
     Dates: start: 20060301
  2. INSULIN [Concomitant]
     Indication: DIABETES MELLITUS
  3. CREON [Concomitant]
     Indication: PANCREATOLITHIASIS
  4. LYRICA [Concomitant]
     Indication: NEUROPATHY PERIPHERAL
  5. NORFLEX [Concomitant]
     Indication: PAIN
  6. MOBIC [Concomitant]
     Indication: PAIN
  7. K SUPPLEMENT [Concomitant]

REACTIONS (1)
  - NEPHROLITHIASIS [None]
